FAERS Safety Report 8804624 (Version 2)
Quarter: 2012Q4

REPORT INFORMATION
  Report Type: 
  Country: JP (occurrence: JP)
  Receive Date: 20120922
  Receipt Date: 20121129
  Transmission Date: 20130627
  Serious: Yes (Other)
  Sender: FDA-Public Use
  Company Number: JP-009507513-2012SP022495

PATIENT
  Age: 69 Year
  Sex: Female
  Weight: 61 kg

DRUGS (11)
  1. PEGINTERFERON ALFA-2B [Suspect]
     Indication: CHRONIC HEPATITIS C
     Dosage: 1.5 Microgram per kilogram, qw
     Route: 058
     Dates: start: 20120301, end: 20120808
  2. REBETOL [Suspect]
     Indication: CHRONIC HEPATITIS C
     Dosage: 400 mg, qd
     Route: 048
     Dates: start: 20120301, end: 20120403
  3. REBETOL [Suspect]
     Dosage: 200 mg, qd
     Route: 048
     Dates: start: 20120425, end: 20120522
  4. REBETOL [Suspect]
     Dosage: 400 mg, qd
     Route: 048
     Dates: start: 20120523, end: 20120703
  5. REBETOL [Suspect]
     Dosage: 200 mg, qd
     Route: 048
     Dates: start: 20120704, end: 20120710
  6. TELAVIC [Suspect]
     Indication: CHRONIC HEPATITIS C
     Dosage: 1500 milligrams, qd
     Route: 048
     Dates: start: 20120301, end: 20120407
  7. TELAVIC [Suspect]
     Dosage: 500 mg, qd
     Route: 048
     Dates: start: 20120425, end: 20120522
  8. PARIET [Concomitant]
     Indication: GASTROOESOPHAGEAL REFLUX DISEASE
     Dosage: FORMULATION: POR
     Route: 048
     Dates: end: 20120711
  9. GASTER [Concomitant]
     Indication: GASTROOESOPHAGEAL REFLUX DISEASE
     Dosage: FORMULATION: POR
     Route: 048
     Dates: end: 20120808
  10. MYSLEE [Concomitant]
     Indication: INSOMNIA
     Dosage: FORMULATION: POR
     Route: 048
     Dates: end: 20120619
  11. [COMPOSITION UNSPECIFIED] [Concomitant]
     Indication: HYPERTENSION
     Dosage: 1 DF, UNK
     Route: 048

REACTIONS (1)
  - Anaemia [Not Recovered/Not Resolved]
